FAERS Safety Report 21634104 (Version 1)
Quarter: 2022Q4

REPORT INFORMATION
  Report Type: Spontaneous
  Country: JP (occurrence: JP)
  Receive Date: 20221123
  Receipt Date: 20221123
  Transmission Date: 20230113
  Serious: Yes (Hospitalization, Other)
  Sender: FDA-Public Use
  Company Number: JP-BRISTOL-MYERS SQUIBB COMPANY-2022-141791

PATIENT
  Age: 43 Year
  Sex: Male

DRUGS (22)
  1. VIDAZA [Suspect]
     Active Substance: AZACITIDINE
     Indication: Acute myeloid leukaemia
     Dosage: 75 MG/M2/24 HOURS
     Route: 042
     Dates: start: 202101
  2. VIDAZA [Suspect]
     Active Substance: AZACITIDINE
     Indication: Myelodysplastic syndrome
     Dosage: 75 MG/M2/24 HOURS
     Route: 042
     Dates: start: 202103
  3. VIDAZA [Suspect]
     Active Substance: AZACITIDINE
     Dosage: 75 MG/M2/24 HOURS
     Route: 042
     Dates: start: 202104
  4. VIDAZA [Suspect]
     Active Substance: AZACITIDINE
     Dosage: /24 HOURS
     Route: 042
     Dates: start: 202105
  5. VIDAZA [Suspect]
     Active Substance: AZACITIDINE
     Dosage: 75 MG/KG/24 HOURS
     Route: 042
     Dates: start: 202106
  6. VIDAZA [Suspect]
     Active Substance: AZACITIDINE
     Dosage: 75 MG/KG/24 HOURS
     Route: 042
     Dates: start: 202107
  7. VIDAZA [Suspect]
     Active Substance: AZACITIDINE
     Dosage: 75 MG/KG/24 HOURS
     Route: 042
     Dates: start: 202109
  8. VIDAZA [Suspect]
     Active Substance: AZACITIDINE
     Dosage: 75 MG/KG/24 HOURS
     Route: 042
     Dates: start: 202110
  9. VIDAZA [Suspect]
     Active Substance: AZACITIDINE
     Dosage: 75 MG/KG/24 HOURS
     Route: 042
     Dates: start: 20211117
  10. VIDAZA [Suspect]
     Active Substance: AZACITIDINE
     Dosage: 75 MG/KG/24 HOURS
     Route: 042
     Dates: start: 20211220, end: 20211224
  11. VIDAZA [Suspect]
     Active Substance: AZACITIDINE
     Dosage: 75 MG/KG/24 HOURS
     Route: 042
     Dates: start: 20220124
  12. VIDAZA [Suspect]
     Active Substance: AZACITIDINE
     Dosage: 75 MG/KG/24 HOURS
     Route: 042
     Dates: start: 20220302, end: 20220307
  13. VIDAZA [Suspect]
     Active Substance: AZACITIDINE
     Dosage: 75 MG/KG/24 HOURS
     Route: 042
     Dates: start: 20220406, end: 20220411
  14. VIDAZA [Suspect]
     Active Substance: AZACITIDINE
     Dosage: 75 MG/KG/24 HOURS
     Route: 042
     Dates: start: 20220511, end: 20220516
  15. VIDAZA [Suspect]
     Active Substance: AZACITIDINE
     Dosage: 75 MG/KG/24 HOURS
     Route: 042
     Dates: start: 20220615, end: 20220620
  16. VIDAZA [Suspect]
     Active Substance: AZACITIDINE
     Dosage: 75 MG/KG/24 HOURS
     Route: 042
     Dates: start: 20220720, end: 20220725
  17. VIDAZA [Suspect]
     Active Substance: AZACITIDINE
     Dosage: 75 MG/KG/24 HOURS
     Route: 042
     Dates: start: 20220824, end: 20220829
  18. VIDAZA [Suspect]
     Active Substance: AZACITIDINE
     Dosage: 75 MG/KG/24 HOURS
     Route: 042
     Dates: start: 20221005, end: 20221010
  19. VIDAZA [Suspect]
     Active Substance: AZACITIDINE
     Dosage: 75 MG/KG/24 HOURS
     Route: 042
     Dates: start: 20221109, end: 20221114
  20. VENETOCLAX [Suspect]
     Active Substance: VENETOCLAX
     Indication: Acute myeloid leukaemia
     Route: 065
     Dates: start: 202107
  21. VENETOCLAX [Suspect]
     Active Substance: VENETOCLAX
     Route: 065
     Dates: start: 202109
  22. VENETOCLAX [Suspect]
     Active Substance: VENETOCLAX
     Route: 065
     Dates: start: 202110

REACTIONS (5)
  - Oral disorder [Unknown]
  - Neutrophil count decreased [Unknown]
  - C-reactive protein increased [Unknown]
  - Pneumonia [Recovering/Resolving]
  - Enterocolitis [Unknown]

NARRATIVE: CASE EVENT DATE: 20211001
